FAERS Safety Report 13691392 (Version 1)
Quarter: 2017Q2

REPORT INFORMATION
  Report Type: Spontaneous
  Country: US (occurrence: US)
  Receive Date: 20170626
  Receipt Date: 20170626
  Transmission Date: 20170830
  Serious: Yes (Hospitalization, Other)
  Sender: FDA-Public Use
  Company Number: US-ROCHE-618175

PATIENT
  Age: 60 Year
  Sex: Female
  Weight: 57 kg

DRUGS (39)
  1. MYCOPHENOLATE SODIUM [Suspect]
     Active Substance: MYCOPHENOLATE SODIUM
     Indication: PRODUCT USED FOR UNKNOWN INDICATION
     Route: 048
  2. GLIPIZIDE. [Concomitant]
     Active Substance: GLIPIZIDE
     Route: 065
  3. MIDAZOLAM [Concomitant]
     Active Substance: MIDAZOLAM HYDROCHLORIDE
     Route: 065
  4. FENTANYL. [Concomitant]
     Active Substance: FENTANYL
     Route: 065
  5. CEFTRIAXONE. [Concomitant]
     Active Substance: CEFTRIAXONE
     Route: 065
  6. VALGANCICLOVIR. [Concomitant]
     Active Substance: VALGANCICLOVIR
     Route: 065
  7. BUMEX [Concomitant]
     Active Substance: BUMETANIDE
     Route: 065
  8. METHYLPREDNISOLONE. [Concomitant]
     Active Substance: METHYLPREDNISOLONE
     Route: 042
     Dates: start: 20090107, end: 20090111
  9. LIDOCAINE. [Concomitant]
     Active Substance: LIDOCAINE
     Dosage: RECEIVED ONLY ON 7 JAN 09
     Route: 042
  10. ACETAMINOPHEN. [Concomitant]
     Active Substance: ACETAMINOPHEN
     Route: 048
  11. TEMAZEPAM. [Concomitant]
     Active Substance: TEMAZEPAM
     Route: 065
  12. PHENYLEPHRINE [Concomitant]
     Active Substance: PHENYLEPHRINE\PHENYLEPHRINE HYDROCHLORIDE
     Route: 042
  13. COREG [Concomitant]
     Active Substance: CARVEDILOL
     Route: 065
  14. PROTONIX [Concomitant]
     Active Substance: PANTOPRAZOLE SODIUM
     Route: 065
  15. NIFEDIPINE. [Concomitant]
     Active Substance: NIFEDIPINE
     Route: 065
  16. PREDNISONE. [Concomitant]
     Active Substance: PREDNISONE
     Route: 065
  17. BACTRIM [Concomitant]
     Active Substance: SULFAMETHOXAZOLE\TRIMETHOPRIM
     Route: 065
  18. SENSIPAR [Concomitant]
     Active Substance: CINACALCET HYDROCHLORIDE
     Route: 048
  19. MEPERIDINE [Concomitant]
     Active Substance: MEPERIDINE
     Route: 042
  20. CALCIUM CHLORIDE. [Concomitant]
     Active Substance: CALCIUM CHLORIDE
     Route: 065
  21. MANNITOL. [Concomitant]
     Active Substance: MANNITOL
     Route: 065
  22. MYFORTIC [Suspect]
     Active Substance: MYCOPHENOLATE SODIUM
     Indication: PRODUCT USED FOR UNKNOWN INDICATION
     Route: 048
  23. TACROLIMUS. [Concomitant]
     Active Substance: TACROLIMUS
     Route: 065
  24. RENAGEL [Concomitant]
     Active Substance: SEVELAMER HYDROCHLORIDE
     Route: 048
  25. PROPOFOL. [Concomitant]
     Active Substance: PROPOFOL
     Route: 042
  26. CLOTRIMAZOLE. [Concomitant]
     Active Substance: CLOTRIMAZOLE
     Route: 065
  27. FUROSEMIDE. [Concomitant]
     Active Substance: FUROSEMIDE
     Route: 065
  28. VERAPAMIL [Concomitant]
     Active Substance: VERAPAMIL HYDROCHLORIDE
     Route: 065
  29. DOPAMINE HYDROCHLORIDE. [Concomitant]
     Active Substance: DOPAMINE HYDROCHLORIDE
     Route: 065
  30. PHENAZOPYRIDINE. [Concomitant]
     Active Substance: PHENAZOPYRIDINE
     Route: 065
  31. CELLCEPT [Suspect]
     Active Substance: MYCOPHENOLATE MOFETIL\MYCOPHENOLATE MOFETIL HYDROCHLORIDE
     Indication: IMMUNOSUPPRESSION
     Route: 048
     Dates: start: 20090107, end: 20090111
  32. BLINDED PLACEBO [Suspect]
     Active Substance: INVESTIGATIONAL PRODUCT
     Indication: PROPHYLAXIS
     Dosage: DOSE: 1 ML, 0.5 MG/KG; DRUG 15 NP VERSUS PHOSPHATE
     Route: 042
     Dates: start: 20090108, end: 20090108
  33. NORCO [Concomitant]
     Active Substance: ACETAMINOPHEN\HYDROCODONE BITARTRATE
     Route: 065
  34. ALBUMIN [Concomitant]
     Active Substance: ALBUMIN HUMAN
     Route: 065
  35. BELLADONNA [Concomitant]
     Active Substance: ATROPA BELLADONNA\HOMEOPATHICS
     Route: 065
  36. CISATRACURIUM BESYLATE. [Concomitant]
     Active Substance: CISATRACURIUM BESYLATE
     Route: 042
     Dates: start: 20090107, end: 20090108
  37. ANTI-THYMOCYTE GLOBULIN (RABBIT) NOS [Concomitant]
     Active Substance: LAPINE T-LYMPHOCYTE IMMUNE GLOBULIN
     Route: 042
     Dates: start: 20090107, end: 20090108
  38. INSULIN [Concomitant]
     Active Substance: INSULIN NOS
     Route: 065
  39. NICARDIPINE [Concomitant]
     Active Substance: NICARDIPINE
     Route: 065

REACTIONS (16)
  - Dyspepsia [Recovered/Resolved]
  - Hypophosphataemia [Not Recovered/Not Resolved]
  - Anaemia [Recovered/Resolved]
  - Cardiac murmur [Recovered/Resolved]
  - Bacterial test positive [Not Recovered/Not Resolved]
  - Vomiting [Recovered/Resolved]
  - Melaena [Recovered/Resolved]
  - Pain [Unknown]
  - Gastrointestinal stenosis [Not Recovered/Not Resolved]
  - Hypoproteinaemia [Recovered/Resolved]
  - Thrombocytopenia [Recovered/Resolved]
  - Hypoalbuminaemia [Recovered/Resolved]
  - Red blood cell count increased [Not Recovered/Not Resolved]
  - Hypotension [Recovered/Resolved]
  - Proteinuria [Unknown]
  - Gastric ulcer [Not Recovered/Not Resolved]

NARRATIVE: CASE EVENT DATE: 20090107
